FAERS Safety Report 15203761 (Version 2)
Quarter: 2018Q4

REPORT INFORMATION
  Report Type: Report from Study
  Country: US (occurrence: US)
  Receive Date: 20180726
  Receipt Date: 20181030
  Transmission Date: 20190204
  Serious: Yes (Other)
  Sender: FDA-Public Use
  Company Number: PHHY2018US052469

PATIENT
  Age: 58 Year
  Sex: Female

DRUGS (1)
  1. GILENYA [Suspect]
     Active Substance: FINGOLIMOD HYDROCHLORIDE
     Indication: MULTIPLE SCLEROSIS
     Dosage: UNK UNK, QD
     Route: 048

REACTIONS (25)
  - Melanocytic naevus [Unknown]
  - Nodule [Unknown]
  - Blood alkaline phosphatase increased [Unknown]
  - Temperature intolerance [Unknown]
  - Pelvic pain [Recovered/Resolved]
  - Vitreous detachment [Unknown]
  - Urinary tract infection [Unknown]
  - Meibomian gland dysfunction [Unknown]
  - Abdominal pain lower [Recovered/Resolved]
  - Back pain [Recovered/Resolved]
  - Cataract nuclear [Unknown]
  - Pericardial cyst [Unknown]
  - Nausea [Recovered/Resolved]
  - Abdominal pain [Recovered/Resolved]
  - Porokeratosis [Unknown]
  - Alanine aminotransferase increased [Unknown]
  - Aspartate aminotransferase increased [Unknown]
  - Fibrous histiocytoma [Unknown]
  - Dysuria [Unknown]
  - Cyst aspiration [Unknown]
  - Seborrhoeic keratosis [Unknown]
  - Flank pain [Recovered/Resolved]
  - Optic neuritis [Unknown]
  - Macular oedema [Unknown]
  - Pelvic discomfort [Unknown]

NARRATIVE: CASE EVENT DATE: 20170109
